FAERS Safety Report 9412823 (Version 2)
Quarter: 2014Q1

REPORT INFORMATION
  Report Type: Spontaneous
  Country: US (occurrence: US)
  Receive Date: 20130722
  Receipt Date: 20140313
  Transmission Date: 20141002
  Serious: No
  Sender: FDA-Public Use
  Company Number: US-009507513-1307USA011929

PATIENT
  Sex: Female
  Weight: 61.22 kg

DRUGS (3)
  1. CORICIDIN HBP COUGH AND COLD [Suspect]
     Indication: NASOPHARYNGITIS
     Dosage: UNK UNK, PRN
     Route: 048
     Dates: start: 20130701, end: 20130704
  2. CORICIDIN HBP COUGH AND COLD [Suspect]
     Indication: MYALGIA
  3. METOPROLOL [Concomitant]
     Indication: HYPERTENSION
     Dosage: UNK, UNKNOWN

REACTIONS (1)
  - Product package associated injury [Unknown]
